FAERS Safety Report 6756468-9 (Version None)
Quarter: 2010Q2

REPORT INFORMATION
  Report Type: 
  Country: None (occurrence: None)
  Receive Date: 20100604
  Receipt Date: 20100528
  Transmission Date: 20101027
  Serious: Yes (Other)
  Sender: FDA-Public Use
  Company Number: A0862638A

PATIENT
  Sex: Male

DRUGS (1)
  1. AVANDAMET [Suspect]
     Dosage: 1TAB TWICE PER DAY
     Dates: start: 20060101

REACTIONS (1)
  - CEREBROVASCULAR ACCIDENT [None]
